FAERS Safety Report 4805192-8 (Version None)
Quarter: 2005Q4

REPORT INFORMATION
  Report Type: 
  Country: None (occurrence: None)
  Receive Date: 20051017
  Receipt Date: 20051004
  Transmission Date: 20060501
  Serious: Yes (Other)
  Sender: FDA-Public Use
  Company Number: 2005137272

PATIENT
  Age: 2 Year
  Sex: Male
  Weight: 13.6079 kg

DRUGS (1)
  1. DESITIN CREAMY DIAPER RASH (ZINC OXIDE) [Suspect]
     Indication: ACCIDENTAL EXPOSURE
     Dosage: PEA-SIZED AMOUNT ONCE, ORAL
     Route: 048
     Dates: start: 20021003, end: 20051003

REACTIONS (6)
  - ACCIDENTAL DRUG INTAKE BY CHILD [None]
  - CELLULITIS [None]
  - CRYING [None]
  - MALAISE [None]
  - PYREXIA [None]
  - SENSATION OF FOREIGN BODY [None]
